FAERS Safety Report 4408594-7 (Version None)
Quarter: 2004Q3

REPORT INFORMATION
  Report Type: 
  Country: None (occurrence: None)
  Receive Date: 20040723
  Receipt Date: 20040708
  Transmission Date: 20050211
  Serious: Yes (Hospitalization)
  Sender: FDA-Public Use
  Company Number: 2004-BP-05355NB

PATIENT
  Age: 53 Year
  Sex: Female

DRUGS (1)
  1. BI-SIFROL TABLETS (PRAMIPEXOLE DIHYDROCHLORIDE (PRAMIPEXOLE) [Suspect]
     Indication: PARKINSON'S DISEASE
     Dosage: 2 MG (0.5 MG) PO
     Route: 048
     Dates: start: 20040308

REACTIONS (2)
  - GASTRIC ULCER HAEMORRHAGE [None]
  - MELAENA [None]
